FAERS Safety Report 22828040 (Version 2)
Quarter: 2023Q4

REPORT INFORMATION
  Report Type: Spontaneous
  Country: US (occurrence: US)
  Receive Date: 20230816
  Receipt Date: 20231018
  Transmission Date: 20240110
  Serious: Yes (Other)
  Sender: FDA-Public Use
  Company Number: US-PFIZER INC-PV202300073055

PATIENT
  Age: 48 Year
  Sex: Female
  Weight: 85.261 kg

DRUGS (5)
  1. CIBINQO [Suspect]
     Active Substance: ABROCITINIB
     Indication: Dermatitis atopic
     Dosage: 100 MG, 1X/DAY (30 DAYS)
     Route: 048
  2. CIBINQO [Suspect]
     Active Substance: ABROCITINIB
     Indication: Rash papular
     Dosage: 10 MG, 1X/DAY
     Dates: start: 202304, end: 202308
  3. CIBINQO [Suspect]
     Active Substance: ABROCITINIB
     Indication: Rash erythematous
  4. CIBINQO [Suspect]
     Active Substance: ABROCITINIB
     Indication: Urticaria
  5. JUNEL FE 1/20 [Concomitant]
     Active Substance: ETHINYL ESTRADIOL\NORETHINDRONE ACETATE
     Dosage: UNK
     Dates: start: 202301

REACTIONS (5)
  - Haemorrhagic urticaria [Recovered/Resolved]
  - Weight increased [Recovered/Resolved]
  - Urticaria [Unknown]
  - Amenorrhoea [Unknown]
  - Blood oestrogen decreased [Unknown]
